FAERS Safety Report 9274743 (Version 5)
Quarter: 2014Q2

REPORT INFORMATION
  Report Type: Spontaneous
  Country: US (occurrence: None)
  Receive Date: 20130429
  Receipt Date: 20140521
  Transmission Date: 20141212
  Serious: Yes (Death, Life-Threatening, Hospitalization)
  Sender: FDA-Public Use
  Company Number: 2013SGN00225

PATIENT
  Age: 65 Year
  Sex: Female
  Weight: 100 kg

DRUGS (11)
  1. BRENTUXIMAB VEDOTIN (BRENTUXIMAB VEDOTIN) INJECTION [Suspect]
     Indication: HODGKIN^S DISEASE
     Dosage: 1,8 MG/KG, Q21D, INTRAVENOUS
     Route: 042
     Dates: start: 20130315, end: 20130404
  2. TRIAMTERENE (TRIAMTERENE) [Concomitant]
  3. VASOTEC (ENALAPRIL MALEATE) [Concomitant]
  4. LORAZEPAM (LORAZEPAM) [Concomitant]
  5. ONDANSETRON (ONDANSETRON) [Concomitant]
  6. ACYCLOVIR (ACYCLOVIR) [Concomitant]
  7. ALLOPURINOL [Concomitant]
  8. NORCO (HYDROCODONE BITARTRATE, PARACETAMOL) [Concomitant]
  9. PREVACID (LANSOPRAZOLE) [Concomitant]
  10. ASPIRIN (ASPIRIN) [Concomitant]
  11. POLYETHYLENE GLYCOL (POLYETHYLENE GLYCOL) [Concomitant]

REACTIONS (22)
  - Pancreatitis acute [None]
  - Renal failure acute [None]
  - Hyperglycaemia [None]
  - Diarrhoea [None]
  - Pneumonia staphylococcal [None]
  - Lactic acidosis [None]
  - Dehydration [None]
  - Confusional state [None]
  - Abdominal pain [None]
  - Multi-organ failure [None]
  - Myocardial ischaemia [None]
  - Myalgia [None]
  - Continuous haemodiafiltration [None]
  - Hypotension [None]
  - Pulseless electrical activity [None]
  - Visceral arterial ischaemia [None]
  - Splenic infarction [None]
  - Haemorrhagic infarction [None]
  - Renal disorder [None]
  - Ovarian disorder [None]
  - Hepatic infarction [None]
  - Cardiac arrest [None]
